FAERS Safety Report 5991691-2 (Version None)
Quarter: 2008Q4

REPORT INFORMATION
  Report Type: 
  Country: None (occurrence: None)
  Receive Date: 20081211
  Receipt Date: 20080505
  Transmission Date: 20090506
  Serious: No
  Sender: FDA-Public Use
  Company Number: US-AMGEN-KDL274180

PATIENT
  Sex: Female

DRUGS (12)
  1. ENBREL [Suspect]
     Indication: RHEUMATOID ARTHRITIS
     Route: 058
     Dates: start: 20080201
  2. ARAVA [Concomitant]
     Route: 048
     Dates: start: 20060101
  3. PREDNISONE TAB [Concomitant]
  4. FOLIC ACID [Concomitant]
  5. THEOPHYLLINE [Concomitant]
  6. PROVENTIL [Concomitant]
  7. SINGULAIR [Concomitant]
  8. NEXIUM [Concomitant]
  9. ADVAIR HFA [Concomitant]
  10. ALBUTEROL [Concomitant]
  11. VERAPAMIL [Concomitant]
  12. ACTONEL [Concomitant]

REACTIONS (2)
  - ASTHMA [None]
  - PRODUCTIVE COUGH [None]
